FAERS Safety Report 4906108-6 (Version None)
Quarter: 2006Q1

REPORT INFORMATION
  Report Type: 
  Country: None (occurrence: None)
  Receive Date: 20060207
  Receipt Date: 20060207
  Transmission Date: 20060701
  Serious: Yes (Hospitalization)
  Sender: FDA-Public Use
  Company Number: None

PATIENT
  Age: 71 Year
  Sex: Male

DRUGS (19)
  1. AUGMENTIN '125' [Suspect]
     Indication: LOCALISED INFECTION
     Dosage: 875/125MG PO BID X10DAYS
     Route: 048
     Dates: start: 20051220, end: 20051230
  2. WARFARIN [Suspect]
     Indication: ANGIOPATHY
     Dosage: 5MG PO QHS EXCEPT 3.75 MG ON TU/TH
     Route: 048
     Dates: start: 20040824, end: 20051231
  3. ALBUTEROL [Concomitant]
  4. AMOXICILLIN [Concomitant]
  5. CLAV K [Concomitant]
  6. CHLORPHENIRAMINE MALEATE [Concomitant]
  7. CLOPIDOGREL BISULFATE [Concomitant]
  8. ENALAPRIL MALEATE [Concomitant]
  9. FELODIPINE [Concomitant]
  10. FERROUS GLUCONATE [Concomitant]
  11. FUROSEMIDE [Concomitant]
  12. GABAPENTIN [Concomitant]
  13. GEMFIBROZIL [Concomitant]
  14. HYDROCHLOROTHIAZIDE [Concomitant]
  15. MECLIZINE HCL [Concomitant]
  16. METFORMIN HCL [Concomitant]
  17. OMEPRAZOLE [Concomitant]
  18. TRAMADOL HCL [Concomitant]
  19. TRAZODONE [Concomitant]

REACTIONS (4)
  - DRUG INTERACTION [None]
  - GASTRIC ANTRAL VASCULAR ECTASIA [None]
  - GASTROINTESTINAL HAEMORRHAGE [None]
  - LOCALISED INFECTION [None]
